FAERS Safety Report 9565456 (Version 1)
Quarter: 2013Q3

REPORT INFORMATION
  Report Type: Spontaneous
  Country: US (occurrence: US)
  Receive Date: 20130930
  Receipt Date: 20130930
  Transmission Date: 20140515
  Serious: Yes (Other)
  Sender: FDA-Public Use
  Company Number: US-BAYER-2013-117365

PATIENT
  Age: 29 Year
  Sex: Female

DRUGS (1)
  1. GADAVIST [Suspect]
     Indication: NUCLEAR MAGNETIC RESONANCE IMAGING BRAIN
     Dosage: 7.5 ML, ONCE
     Dates: start: 20130924, end: 20130924

REACTIONS (4)
  - Eyelid oedema [None]
  - Eyelids pruritus [None]
  - Cough [None]
  - Throat irritation [None]
